FAERS Safety Report 10340097 (Version 2)
Quarter: 2014Q3

REPORT INFORMATION
  Report Type: Spontaneous
  Country: US (occurrence: US)
  Receive Date: 20140724
  Receipt Date: 20140724
  Transmission Date: 20150326
  Serious: Yes (Hospitalization, Other)
  Sender: FDA-Public Use
  Company Number: US-009507513-2010SP004262

PATIENT
  Sex: Female
  Weight: 99.79 kg

DRUGS (1)
  1. NUVARING [Suspect]
     Active Substance: ETHINYL ESTRADIOL\ETONOGESTREL
     Indication: CONTRACEPTION
     Dosage: UNK
     Route: 067
     Dates: start: 2006, end: 200802

REACTIONS (13)
  - Panic attack [Unknown]
  - Rectal haemorrhage [Unknown]
  - Anxiety [Not Recovered/Not Resolved]
  - Head injury [Unknown]
  - Back pain [Unknown]
  - Vaginal haemorrhage [Unknown]
  - Pulmonary embolism [Recovered/Resolved]
  - Fall [Unknown]
  - Depression [Unknown]
  - Migraine [Not Recovered/Not Resolved]
  - Faeces soft [Unknown]
  - Pain in extremity [Unknown]
  - Dizziness [Unknown]

NARRATIVE: CASE EVENT DATE: 200801
